FAERS Safety Report 17984769 (Version 1)
Quarter: 2020Q3

REPORT INFORMATION
  Report Type: Spontaneous
  Country: US (occurrence: US)
  Receive Date: 20200706
  Receipt Date: 20200706
  Transmission Date: 20201103
  Serious: No
  Sender: FDA-Public Use
  Company Number: US-PRINSTON PHARMACEUTICAL INC.-2019PRN00831

PATIENT
  Age: 70 Year
  Sex: Female
  Weight: 111.11 kg

DRUGS (4)
  1. LISINOPRIL. [Suspect]
     Active Substance: LISINOPRIL
     Indication: BLOOD PRESSURE INCREASED
     Dosage: 20 MG, 1X/DAY ^AT 7:30 ON  AN EMPTY STOMACH^
     Route: 048
     Dates: start: 20190919, end: 20190923
  2. LISINOPRIL. [Suspect]
     Active Substance: LISINOPRIL
     Indication: BLOOD PRESSURE INCREASED
     Dosage: 20 MG, 1X/DAY
     Route: 048
     Dates: end: 20190919
  3. LISINOPRIL. [Suspect]
     Active Substance: LISINOPRIL
     Dosage: 20 MG, 1X/DAY
     Route: 048
     Dates: start: 20190924
  4. SYNTHROID [Concomitant]
     Active Substance: LEVOTHYROXINE SODIUM

REACTIONS (9)
  - Increased appetite [Recovered/Resolved]
  - Ocular discomfort [Recovered/Resolved]
  - Product dose omission issue [Recovered/Resolved]
  - Fatigue [Recovering/Resolving]
  - Blood cholesterol increased [Unknown]
  - Asthenia [Recovering/Resolving]
  - Feeling abnormal [Recovered/Resolved]
  - Visual impairment [Recovered/Resolved]
  - Dizziness [Not Recovered/Not Resolved]

NARRATIVE: CASE EVENT DATE: 201909
